FAERS Safety Report 5573852-X (Version None)
Quarter: 2007Q4

REPORT INFORMATION
  Report Type: 
  Country: None (occurrence: None)
  Receive Date: 20071226
  Receipt Date: 20071221
  Transmission Date: 20080405
  Serious: Yes (Other)
  Sender: FDA-Public Use
  Company Number: TW-ASTRAZENECA-2007AP08084

PATIENT
  Age: 50 Year
  Sex: Male

DRUGS (2)
  1. CRESTOR [Suspect]
     Indication: HYPERLIPIDAEMIA
     Route: 048
     Dates: start: 20071019, end: 20071107
  2. ANTIHYPERTENSIVE [Concomitant]

REACTIONS (1)
  - THROMBOCYTOPENIC PURPURA [None]
